FAERS Safety Report 17683999 (Version 1)
Quarter: 2020Q2

REPORT INFORMATION
  Report Type: Spontaneous
  Country: US (occurrence: US)
  Receive Date: 20200420
  Receipt Date: 20200420
  Transmission Date: 20200714
  Serious: Yes (Death)
  Sender: FDA-Public Use
  Company Number: US-ROCHE-2585452

PATIENT
  Age: 81 Year
  Sex: Male

DRUGS (20)
  1. MYRBETRIQ [Concomitant]
     Active Substance: MIRABEGRON
  2. TRANILAST [Concomitant]
     Active Substance: TRANILAST
  3. FUROSEMIDE. [Concomitant]
     Active Substance: FUROSEMIDE
  4. LOSARTAN. [Concomitant]
     Active Substance: LOSARTAN
  5. MIRTAZAPINE. [Concomitant]
     Active Substance: MIRTAZAPINE
  6. MORPHINE [Concomitant]
     Active Substance: MORPHINE
  7. TAMSULOSIN [Concomitant]
     Active Substance: TAMSULOSIN
  8. ALPRAZOLAM. [Concomitant]
     Active Substance: ALPRAZOLAM
  9. ELIQUIS [Concomitant]
     Active Substance: APIXABAN
  10. EPINEPHRINE. [Concomitant]
     Active Substance: EPINEPHRINE
  11. SERTRALINE [Concomitant]
     Active Substance: SERTRALINE HYDROCHLORIDE
  12. XOLAIR [Suspect]
     Active Substance: OMALIZUMAB
     Indication: ASTHMA
     Route: 058
     Dates: start: 20160127, end: 20200411
  13. BUDESONIDE. [Concomitant]
     Active Substance: BUDESONIDE
  14. COMBIVENT [Concomitant]
     Active Substance: ALBUTEROL SULFATE\IPRATROPIUM BROMIDE
  15. ASPERCREME PAIN RELIEVING [Concomitant]
     Active Substance: TROLAMINE SALICYLATE
  16. PANTOPRAZOLE [Concomitant]
     Active Substance: PANTOPRAZOLE
  17. GABAPENTIN. [Concomitant]
     Active Substance: GABAPENTIN
  18. NEURONTIN [Concomitant]
     Active Substance: GABAPENTIN
  19. PREDNISONE. [Concomitant]
     Active Substance: PREDNISONE
  20. QUETIAPINE. [Concomitant]
     Active Substance: QUETIAPINE

REACTIONS (1)
  - Death [Fatal]

NARRATIVE: CASE EVENT DATE: 20200411
